FAERS Safety Report 16475793 (Version 1)
Quarter: 2019Q2

REPORT INFORMATION
  Report Type: Spontaneous
  Country: US (occurrence: US)
  Receive Date: 20190625
  Receipt Date: 20190625
  Transmission Date: 20190711
  Serious: Yes (Hospitalization, Other)
  Sender: FDA-Public Use
  Company Number: US-ACELLA PHARMACEUTICALS, LLC-2069569

PATIENT
  Age: 46 Year
  Sex: Male

DRUGS (2)
  1. IBUPROFEN. [Suspect]
     Active Substance: IBUPROFEN
     Route: 065
  2. GABAPENTIN. [Suspect]
     Active Substance: GABAPENTIN
     Indication: PRODUCT USED FOR UNKNOWN INDICATION
     Route: 065

REACTIONS (6)
  - Delirium [Recovering/Resolving]
  - Myoclonus [Recovering/Resolving]
  - Hypotension [Recovering/Resolving]
  - Hallucination [Recovering/Resolving]
  - Cognitive disorder [Recovering/Resolving]
  - Liver injury [Recovering/Resolving]
